FAERS Safety Report 17168987 (Version 2)
Quarter: 2020Q1

REPORT INFORMATION
  Report Type: Spontaneous
  Country: US (occurrence: US)
  Receive Date: 20191218
  Receipt Date: 20200129
  Transmission Date: 20200409
  Serious: Yes (Hospitalization)
  Sender: FDA-Public Use
  Company Number: US-PROCTER+GAMBLE-GS19133393

PATIENT
  Age: 55 Year
  Sex: Female

DRUGS (1)
  1. METAMUCIL THERAPY FOR REGULARITY [Suspect]
     Active Substance: PSYLLIUM HUSK
     Route: 055

REACTIONS (10)
  - Dysgeusia [Unknown]
  - Gastrooesophageal reflux disease [Unknown]
  - Product physical issue [Unknown]
  - Occupational exposure to product [Unknown]
  - Dyspnoea [Not Recovered/Not Resolved]
  - Cough [Not Recovered/Not Resolved]
  - Productive cough [Not Recovered/Not Resolved]
  - Dysphonia [Not Recovered/Not Resolved]
  - Exposure via inhalation [Unknown]
  - Condition aggravated [Unknown]
